FAERS Safety Report 9839186 (Version 1)
Quarter: 2014Q1

REPORT INFORMATION
  Report Type: Spontaneous
  Country: FR (occurrence: FR)
  Receive Date: 20140123
  Receipt Date: 20140123
  Transmission Date: 20141002
  Serious: Yes (Hospitalization)
  Sender: FDA-Public Use
  Company Number: FR-ABBVIE-14P-056-1192238-00

PATIENT
  Age: 30 Year
  Sex: Female

DRUGS (3)
  1. ENANTONE [Suspect]
     Indication: IN VITRO FERTILISATION
     Route: 050
     Dates: start: 20130326
  2. GONAL-F [Suspect]
     Indication: IN VITRO FERTILISATION
     Route: 058
     Dates: start: 20130326, end: 20130408
  3. CHORIOGONADOTROPIN ALFA [Suspect]
     Indication: PRODUCT USED FOR UNKNOWN INDICATION
     Dosage: ONE INJECTION RECEIVED
     Dates: start: 20130409

REACTIONS (3)
  - Ovarian hyperstimulation syndrome [Recovered/Resolved]
  - Ascites [Recovered/Resolved]
  - Dyspnoea [Recovered/Resolved]
